FAERS Safety Report 6492132-1 (Version None)
Quarter: 2009Q4

REPORT INFORMATION
  Report Type: 
  Country: None (occurrence: None)
  Receive Date: 20091214
  Receipt Date: 20091203
  Transmission Date: 20100525
  Serious: Yes (Other)
  Sender: FDA-Public Use
  Company Number: GB-RANBAXY-2009RR-29581

PATIENT
  Age: 87 Year
  Sex: Male
  Weight: 99 kg

DRUGS (7)
  1. SIMVASTATIN [Suspect]
     Indication: BLOOD CHOLESTEROL INCREASED
     Dosage: 40 MG, UNK
     Route: 048
     Dates: start: 20090922, end: 20091124
  2. AMLODIPINE [Concomitant]
     Dosage: UNK
     Dates: start: 20060306
  3. BENDROFLUMETHIAZIDE [Concomitant]
     Dosage: UNK
     Dates: start: 20060704
  4. BIMATOPROST [Concomitant]
     Dosage: UNK
     Dates: start: 20071220
  5. BRIMONIDINE TARTRATE [Concomitant]
     Dosage: UNK
     Dates: start: 20090507
  6. BRINZOLAMIDE [Concomitant]
     Dosage: UNK
     Dates: end: 20091009
  7. TIMOLOL [Concomitant]
     Dosage: UNK
     Dates: start: 20090507

REACTIONS (1)
  - AMNESIA [None]
